FAERS Safety Report 9620403 (Version 1)
Quarter: 2013Q4

REPORT INFORMATION
  Report Type: Spontaneous
  Country: BR (occurrence: US)
  Receive Date: 20131015
  Receipt Date: 20131015
  Transmission Date: 20140711
  Serious: Yes (Other)
  Sender: FDA-Public Use
  Company Number: -SAAVPROD-BMS17037573

PATIENT
  Sex: Female

DRUGS (1)
  1. APROZIDE [Suspect]
     Dosage: 1DF: (IRBESARTAN, HYDROCHLOROTHIAZIDE)300/12.5 MG.

REACTIONS (1)
  - Renal failure [Unknown]
